FAERS Safety Report 16259886 (Version 2)
Quarter: 2019Q2

REPORT INFORMATION
  Report Type: Report from Study
  Country: JP (occurrence: JP)
  Receive Date: 20190501
  Receipt Date: 20190605
  Transmission Date: 20190711
  Serious: Yes (Hospitalization)
  Sender: FDA-Public Use
  Company Number: JP-ELI_LILLY_AND_COMPANY-JP201903009410

PATIENT
  Age: 76 Year
  Sex: Female
  Weight: 37 kg

DRUGS (4)
  1. METHOTREXATE. [Suspect]
     Active Substance: METHOTREXATE
     Indication: RHEUMATOID ARTHRITIS
     Dosage: 10 MG, WEEKLY (1/W)
     Route: 065
     Dates: start: 1988
  2. METHOTREXATE. [Suspect]
     Active Substance: METHOTREXATE
     Dosage: 6 MG, WEEKLY (1/W)
     Route: 065
  3. PREDONINE [PREDNISOLONE ACETATE] [Concomitant]
     Active Substance: PREDNISOLONE ACETATE
     Indication: RHEUMATOID ARTHRITIS
     Dosage: 7.5 MG, DAILY
     Route: 065
     Dates: start: 1998
  4. BARICITINIB [Suspect]
     Active Substance: BARICITINIB
     Indication: RHEUMATOID ARTHRITIS
     Dosage: 4 MG, DAILY
     Route: 048
     Dates: start: 20180426, end: 20190305

REACTIONS (7)
  - Platelet count decreased [Recovered/Resolved]
  - Urinary tract infection [Unknown]
  - Anaemia [Recovering/Resolving]
  - Acute kidney injury [Recovered/Resolved]
  - Herpes zoster [Recovered/Resolved]
  - Melaena [Unknown]
  - Mucosal disorder [Unknown]

NARRATIVE: CASE EVENT DATE: 20190305
